FAERS Safety Report 4578043-7 (Version None)
Quarter: 2005Q1

REPORT INFORMATION
  Report Type: 
  Country: None (occurrence: None)
  Receive Date: 20050209
  Receipt Date: 20050202
  Transmission Date: 20050727
  Serious: Yes (Other)
  Sender: FDA-Public Use
  Company Number: 2005023892

PATIENT
  Age: 67 Year
  Sex: Female

DRUGS (3)
  1. ATARAX [Suspect]
     Indication: ILL-DEFINED DISORDER
     Dosage: 25 MG , INTRAMUSCULAR
     Route: 030
  2. PENTAZOCINE [Concomitant]
  3. DROPERIDOL [Concomitant]

REACTIONS (2)
  - CEREBRAL INFARCTION [None]
  - PROCEDURAL COMPLICATION [None]
